FAERS Safety Report 5367878-9 (Version None)
Quarter: 2007Q2

REPORT INFORMATION
  Report Type: 
  Country: None (occurrence: None)
  Receive Date: 20070622
  Receipt Date: 20070615
  Transmission Date: 20071010
  Serious: Yes (Hospitalization, Other)
  Sender: FDA-Public Use
  Company Number: DE-ELI_LILLY_AND_COMPANY-DE200706003438

PATIENT
  Age: 16 Year
  Sex: Male
  Weight: 86 kg

DRUGS (3)
  1. STRATTERA [Suspect]
     Indication: ATTENTION DEFICIT/HYPERACTIVITY DISORDER
     Dosage: 60 MG, DAILY (1/D)
     Route: 048
     Dates: start: 20070530, end: 20070530
  2. STRATTERA [Suspect]
     Dosage: 60 MG, UNK
     Route: 048
     Dates: start: 20060101, end: 20070501
  3. MEDIKINET [Concomitant]
     Dosage: 30 MG, EACH MORNING
     Route: 048
     Dates: start: 20060101, end: 20070501

REACTIONS (3)
  - CONVULSION [None]
  - EPILEPSY [None]
  - MENINGITIS VIRAL [None]
